FAERS Safety Report 8322832-X (Version None)
Quarter: 2012Q2

REPORT INFORMATION
  Report Type: 
  Country: None (occurrence: None)
  Receive Date: 20120430
  Receipt Date: 20120418
  Transmission Date: 20120825
  Serious: Yes (Hospitalization)
  Sender: FDA-Public Use
  Company Number: US-ROCHE-765095

PATIENT
  Sex: Female
  Weight: 71.44 kg

DRUGS (7)
  1. RITONAVIR [Suspect]
     Indication: HIV INFECTION
     Route: 065
  2. POTASSIUM CHLORIDE [Concomitant]
     Indication: HYPOKALAEMIA
  3. INVIRASE [Suspect]
     Indication: HIV INFECTION
     Route: 065
  4. VITAMIN C [Concomitant]
     Indication: SUPPLEMENTATION THERAPY
  5. AMBRISENTAN [Concomitant]
     Indication: PULMONARY HYPERTENSION
     Dosage: LETAIRIS
  6. SEROQUEL [Concomitant]
     Indication: DEPRESSION
  7. BLINDED CICLETANINE [Suspect]
     Indication: PULMONARY ARTERIAL HYPERTENSION
     Route: 048

REACTIONS (1)
  - HYPOKALAEMIA [None]
